FAERS Safety Report 19015184 (Version 2)
Quarter: 2021Q3

REPORT INFORMATION
  Report Type: Spontaneous
  Country: DE (occurrence: DE)
  Receive Date: 20210317
  Receipt Date: 20210812
  Transmission Date: 20211014
  Serious: Yes (Other)
  Sender: FDA-Public Use
  Company Number: DE-BAUSCH-BL-2021-007820

PATIENT
  Age: 56 Year
  Sex: Female
  Weight: 68 kg

DRUGS (18)
  1. OCREVUS [Suspect]
     Active Substance: OCRELIZUMAB
     Dosage: INFUSION, SOLUTION
     Route: 042
     Dates: start: 202008
  2. CETIXIN [Concomitant]
     Indication: PRODUCT USED FOR UNKNOWN INDICATION
  3. DEXAMETHASONE. [Suspect]
     Active Substance: DEXAMETHASONE
     Indication: PRIMARY PROGRESSIVE MULTIPLE SCLEROSIS
     Dosage: INFUSION, SOLUTION
     Route: 042
     Dates: start: 20180813
  4. DEXAMETHASONE. [Suspect]
     Active Substance: DEXAMETHASONE
     Dosage: INFUSION, SOLUTION
     Route: 042
     Dates: start: 20180730
  5. OCREVUS [Suspect]
     Active Substance: OCRELIZUMAB
     Dosage: INFUSION, SOLUTION
     Route: 042
     Dates: start: 20190211
  6. LENZETTO [Concomitant]
     Active Substance: ESTRADIOL
     Indication: OESTROGEN DEFICIENCY
  7. DEXAMETHASONE. [Suspect]
     Active Substance: DEXAMETHASONE
     Dosage: INFUSION, SOLUTION
     Route: 042
     Dates: start: 202008
  8. OCREVUS [Suspect]
     Active Substance: OCRELIZUMAB
     Dosage: INFUSION, SOLUTION
     Route: 042
     Dates: start: 20180813
  9. NOVOTHYRAL [Concomitant]
     Active Substance: LEVOTHYROXINE SODIUM\LIOTHYRONINE SODIUM
     Indication: HYPOTHYROIDISM
     Route: 048
  10. OCREVUS [Suspect]
     Active Substance: OCRELIZUMAB
     Indication: PRIMARY PROGRESSIVE MULTIPLE SCLEROSIS
     Dosage: INFUSION, SOLUTION
     Route: 042
     Dates: start: 20210208
  11. FENISTIL [Concomitant]
     Active Substance: DIMETHINDENE
     Indication: PRODUCT USED FOR UNKNOWN INDICATION
     Dosage: TREATMENT DATE: 13/AUG/2018, /AUG/2020 AND 08/FEB/2021, END DATE IS ONGOING
     Route: 042
     Dates: start: 20180730
  12. METHYLPREDNISOLONE. [Concomitant]
     Active Substance: METHYLPREDNISOLONE
  13. CETIRIZIN [Concomitant]
     Active Substance: CETIRIZINE HYDROCHLORIDE
     Indication: PREMEDICATION
     Route: 048
     Dates: start: 20180730
  14. DEXAMETHASONE. [Suspect]
     Active Substance: DEXAMETHASONE
     Dosage: INFUSION, SOLUTION
     Route: 042
     Dates: start: 20210208, end: 20210208
  15. METHYLPREDNISOLONE. [Concomitant]
     Active Substance: METHYLPREDNISOLONE
     Indication: PRODUCT USED FOR UNKNOWN INDICATION
     Dosage: START DATE IS UNKNOWN END DATE IS ONGOING
     Dates: start: 20180730
  16. OCREVUS [Suspect]
     Active Substance: OCRELIZUMAB
     Dosage: INFUSION, SOLUTION
     Route: 042
     Dates: start: 20180730, end: 20180813
  17. MYOPRIDIN [Concomitant]
     Indication: PRODUCT USED FOR UNKNOWN INDICATION
     Dosage: START DATE IS UNKNOWN END DATE IS ONGOING
  18. FAMPYRA [Concomitant]
     Active Substance: DALFAMPRIDINE
     Indication: PRODUCT USED FOR UNKNOWN INDICATION
     Dosage: END DATE IS ONGOING

REACTIONS (25)
  - Hyperhidrosis [Not Recovered/Not Resolved]
  - Myalgia [Not Recovered/Not Resolved]
  - Product administration error [Unknown]
  - Fatigue [Recovered/Resolved]
  - Burning sensation [Recovered/Resolved]
  - Disturbance in attention [Not Recovered/Not Resolved]
  - Multiple sclerosis [Unknown]
  - Headache [Not Recovered/Not Resolved]
  - Paraesthesia [Not Recovered/Not Resolved]
  - Flushing [Not Recovered/Not Resolved]
  - Visual impairment [Not Recovered/Not Resolved]
  - Secretion discharge [Recovered/Resolved]
  - Erythema [Recovered/Resolved]
  - Tachycardia [Not Recovered/Not Resolved]
  - Sleep disorder [Recovered/Resolved]
  - Tremor [Not Recovered/Not Resolved]
  - Asthenia [Not Recovered/Not Resolved]
  - Product prescribing error [Unknown]
  - Abdominal discomfort [Not Recovered/Not Resolved]
  - Nasopharyngitis [Not Recovered/Not Resolved]
  - Throat irritation [Unknown]
  - Palpitations [Not Recovered/Not Resolved]
  - Swelling face [Recovered/Resolved]
  - Heart rate increased [Recovered/Resolved]
  - Dizziness [Not Recovered/Not Resolved]

NARRATIVE: CASE EVENT DATE: 202102
